FAERS Safety Report 8351225-4 (Version None)
Quarter: 2012Q2

REPORT INFORMATION
  Report Type: 
  Country: None (occurrence: None)
  Receive Date: 20120510
  Receipt Date: 20120501
  Transmission Date: 20120825
  Serious: Yes (Hospitalization)
  Sender: FDA-Public Use
  Company Number: NL-MEDIMMUNE-MEDI-0015493

PATIENT
  Sex: Female
  Weight: 3.78 kg

DRUGS (2)
  1. SYNAGIS [Suspect]
     Indication: PREMATURE BABY
     Route: 030
     Dates: start: 20120222, end: 20120319
  2. SYNAGIS [Suspect]
     Route: 030
     Dates: start: 20120416

REACTIONS (3)
  - FLUID INTAKE REDUCED [None]
  - WEIGHT DECREASED [None]
  - COUGH [None]
